FAERS Safety Report 19781035 (Version 1)
Quarter: 2021Q3

REPORT INFORMATION
  Report Type: Spontaneous
  Country: US (occurrence: US)
  Receive Date: 20210902
  Receipt Date: 20210902
  Transmission Date: 20211014
  Serious: No
  Sender: FDA-Public Use
  Company Number: US-MYLANLABS-2021M1057902

PATIENT
  Sex: Male

DRUGS (1)
  1. PRASUGREL TABLETS [Suspect]
     Active Substance: PRASUGREL
     Indication: VASCULAR DEVICE USER
     Dosage: 5 MILLIGRAM
     Route: 048
     Dates: start: 202106

REACTIONS (1)
  - Dyspnoea [Not Recovered/Not Resolved]
